FAERS Safety Report 16041934 (Version 3)
Quarter: 2020Q3

REPORT INFORMATION
  Report Type: Spontaneous
  Country: US (occurrence: US)
  Receive Date: 20190306
  Receipt Date: 20190820
  Transmission Date: 20201105
  Serious: No
  Sender: FDA-Public Use
  Company Number: US-PFIZER INC-2019094193

PATIENT
  Sex: Female

DRUGS (19)
  1. FENTANYL CITRATE. [Suspect]
     Active Substance: FENTANYL CITRATE
     Dosage: UNK
  2. METOCLOPRAMIDE HCL [Suspect]
     Active Substance: METOCLOPRAMIDE HYDROCHLORIDE
     Dosage: UNK
  3. SACCHARIN [Suspect]
     Active Substance: SACCHARIN
     Dosage: UNK
  4. CEFTRIAXONE SODIUM. [Suspect]
     Active Substance: CEFTRIAXONE SODIUM
     Dosage: UNK
  5. GABAPENTIN. [Suspect]
     Active Substance: GABAPENTIN
     Dosage: UNK
  6. MORPHINE SULFATE. [Suspect]
     Active Substance: MORPHINE SULFATE
     Dosage: UNK
  7. MECOBALAMIN [Suspect]
     Active Substance: METHYLCOBALAMIN
     Dosage: UNK
  8. NITROFURANTOIN. [Suspect]
     Active Substance: NITROFURANTOIN
     Dosage: UNK
  9. SUCCINYLSULFATHIAZOLE. [Suspect]
     Active Substance: SUCCINYLSULFATHIAZOLE
     Dosage: UNK
  10. PROMETHAZINE HCL [Suspect]
     Active Substance: PROMETHAZINE HYDROCHLORIDE
     Dosage: UNK
  11. NITROFURANTOIN MACROCRYSTALS [Suspect]
     Active Substance: NITROFURANTOIN
     Dosage: UNK
  12. PREDNISONE. [Suspect]
     Active Substance: PREDNISONE
     Dosage: UNK
  13. ASPARTAME [Suspect]
     Active Substance: ASPARTAME
     Dosage: UNK
  14. CYANOCOBALAMIN. [Suspect]
     Active Substance: CYANOCOBALAMIN
     Dosage: UNK
  15. NITROFURANTOIN MONOHYDRATE MACROCRYSTALS [Suspect]
     Active Substance: NITROFURANTOIN\NITROFURANTOIN MONOHYDRATE
     Dosage: UNK
  16. CELECOXIB. [Suspect]
     Active Substance: CELECOXIB
     Dosage: UNK
  17. KEFLEX [Suspect]
     Active Substance: CEPHALEXIN
     Dosage: UNK
  18. CIPROFLOXACIN. [Suspect]
     Active Substance: CIPROFLOXACIN
     Dosage: UNK
  19. CEPHALEXIN MONOHYDRATE. [Suspect]
     Active Substance: CEPHALEXIN MONOHYDRATE
     Dosage: UNK

REACTIONS (1)
  - Drug hypersensitivity [Unknown]
